APPROVED DRUG PRODUCT: LORAZEPAM
Active Ingredient: LORAZEPAM
Strength: 4MG/ML
Dosage Form/Route: INJECTABLE;INJECTION
Application: A074496 | Product #002
Applicant: HIKMA PHARMACEUTICALS USA INC
Approved: Sep 28, 1998 | RLD: No | RS: No | Type: DISCN